FAERS Safety Report 14835993 (Version 1)
Quarter: 2018Q2

REPORT INFORMATION
  Report Type: Spontaneous
  Country: US (occurrence: US)
  Receive Date: 20180502
  Receipt Date: 20180502
  Transmission Date: 20180711
  Serious: Yes (Disabling, Other)
  Sender: FDA-Public Use
  Company Number: US-GBPHLPEH-2018-PEL-003416

PATIENT

DRUGS (10)
  1. VESICARE [Concomitant]
     Active Substance: SOLIFENACIN SUCCINATE
     Indication: HYPERTONIC BLADDER
     Dosage: UNK
     Route: 065
  2. CALCIUM 500+D [Concomitant]
     Active Substance: CALCIUM\VITAMIN D
     Dosage: UNK
  3. MYRBETRIQ [Concomitant]
     Active Substance: MIRABEGRON
     Dosage: 50 MG, (EXTENDED RELEASE)
     Route: 065
  4. SIMVASTATIN. [Concomitant]
     Active Substance: SIMVASTATIN
     Dosage: UNK
  5. ASPIRIN                            /00002701/ [Concomitant]
     Active Substance: ASPIRIN
     Dosage: 81 MG, QD (1 TABLET EVERY OTHER DAY)
     Route: 048
  6. LATANOPROST. [Concomitant]
     Active Substance: LATANOPROST
     Dosage: UNK
     Route: 065
  7. PILOCARPINE. [Concomitant]
     Active Substance: PILOCARPINE
     Dosage: UNK
     Route: 065
  8. GABLOFEN [Suspect]
     Active Substance: BACLOFEN
     Dosage: 135 ?G, QD
     Route: 037
  9. GABLOFEN [Suspect]
     Active Substance: BACLOFEN
     Indication: PAIN
     Dosage: 135.2 ?G, QD
     Route: 037
  10. GABLOFEN [Suspect]
     Active Substance: BACLOFEN
     Indication: MUSCLE SPASTICITY
     Dosage: 200 ?G, QD
     Route: 037

REACTIONS (10)
  - Paraplegia [Unknown]
  - Pollakiuria [Unknown]
  - Migraine [Unknown]
  - Motor neurone disease [Unknown]
  - Gait inability [Unknown]
  - Musculoskeletal stiffness [Unknown]
  - Oedema peripheral [Unknown]
  - Abnormal behaviour [Unknown]
  - Arthralgia [Unknown]
  - Muscle spasticity [Unknown]

NARRATIVE: CASE EVENT DATE: 20170805
